FAERS Safety Report 4601562-1 (Version None)
Quarter: 2005Q1

REPORT INFORMATION
  Report Type: 
  Country: None (occurrence: None)
  Receive Date: 20050131
  Receipt Date: 20041123
  Transmission Date: 20050727
  Serious: Yes (Hospitalization)
  Sender: FDA-Public Use
  Company Number: 200419053US

PATIENT

DRUGS (2)
  1. KETEK [Suspect]
  2. LIPITOR [Concomitant]

REACTIONS (3)
  - ARRHYTHMIA [None]
  - LOSS OF CONSCIOUSNESS [None]
  - VENTRICULAR EXTRASYSTOLES [None]
